FAERS Safety Report 7538072-8 (Version None)
Quarter: 2011Q2

REPORT INFORMATION
  Report Type: 
  Country: None (occurrence: None)
  Receive Date: 20110609
  Receipt Date: 20110606
  Transmission Date: 20111010
  Serious: Yes (Life-Threatening, Hospitalization)
  Sender: FDA-Public Use
  Company Number: BR-PFIZER INC-2011099056

PATIENT
  Sex: Male

DRUGS (1)
  1. ALPRAZOLAM [Suspect]
     Dosage: 0.5 MG TABLETS, MANY AT ONE TIME
     Route: 048
     Dates: start: 20110509

REACTIONS (5)
  - SYNCOPE [None]
  - OVERDOSE [None]
  - HALLUCINATION [None]
  - SUICIDE ATTEMPT [None]
  - VOMITING [None]
